FAERS Safety Report 18393341 (Version 2)
Quarter: 2020Q4

REPORT INFORMATION
  Report Type: Spontaneous
  Country: US (occurrence: US)
  Receive Date: 20201016
  Receipt Date: 20201123
  Transmission Date: 20210114
  Serious: Yes (Death, Hospitalization, Other)
  Sender: FDA-Public Use
  Company Number: US-GILEAD-2020-0499383

PATIENT
  Age: 73 Year
  Sex: Male
  Weight: 108.3 kg

DRUGS (24)
  1. ALBUTEROL [SALBUTAMOL] [Concomitant]
     Active Substance: ALBUTEROL
     Indication: DYSPNOEA
     Dosage: 2 DOSAGE FORM, PRN
     Route: 055
     Dates: start: 20200722, end: 20200825
  2. INSULIN ASPART [Concomitant]
     Active Substance: INSULIN ASPART
     Dosage: UNK UNK, PRN
     Route: 058
     Dates: start: 20200721, end: 20200820
  3. CALCIUM CHLORIDE. [Concomitant]
     Active Substance: CALCIUM CHLORIDE
     Indication: HYPOCALCAEMIA
     Dosage: 1 G, PRN
     Route: 042
     Dates: start: 20200726, end: 20200825
  4. DEXAMETHASONE. [Concomitant]
     Active Substance: DEXAMETHASONE
     Dosage: 6 MG, QD
     Route: 042
     Dates: start: 20200721, end: 20200731
  5. ONDANSETRON [Concomitant]
     Active Substance: ONDANSETRON
     Indication: NAUSEA
     Dosage: 4 MG, PRN
     Route: 042
     Dates: start: 20200721, end: 20200825
  6. ONDANSETRON [Concomitant]
     Active Substance: ONDANSETRON
     Indication: VOMITING
  7. ACETYLCYSTEINE. [Concomitant]
     Active Substance: ACETYLCYSTEINE
     Indication: DYSPNOEA
     Dosage: 800 MG, PRN
     Route: 055
     Dates: start: 20200807, end: 20200825
  8. DEXMEDETOMIDINE. [Concomitant]
     Active Substance: DEXMEDETOMIDINE
     Indication: SEDATION
     Dosage: 0.4 MCG/KG/MIN
     Route: 042
     Dates: start: 20200725, end: 20200825
  9. FAMOTIDINE. [Concomitant]
     Active Substance: FAMOTIDINE
     Dosage: 20 MG, BID
     Route: 042
     Dates: start: 20200725, end: 20200816
  10. INSULIN DETEMIR [Concomitant]
     Active Substance: INSULIN DETEMIR
     Indication: HYPERGLYCAEMIA
     Dosage: 10 DOSAGE FORM, BID
     Route: 058
     Dates: start: 20200731, end: 20200825
  11. PANTOPRAZOLE [Concomitant]
     Active Substance: PANTOPRAZOLE
     Indication: PROPHYLAXIS
     Dosage: 40 MG, BID
     Route: 042
     Dates: start: 20200816, end: 20200825
  12. PROPOFOL. [Concomitant]
     Active Substance: PROPOFOL
     Indication: SEDATION
     Dosage: 5 MCG/KG/MIN
     Route: 042
     Dates: start: 20200725, end: 20200825
  13. SODIUM ZIRCONIUM CYCLOSILICATE. [Concomitant]
     Active Substance: SODIUM ZIRCONIUM CYCLOSILICATE
     Indication: HYPERKALAEMIA
     Dosage: 10 G, QD
     Route: 048
     Dates: start: 20200816, end: 20200825
  14. REMDESIVIR. [Suspect]
     Active Substance: REMDESIVIR
     Dosage: 100 MG, ONCE
     Route: 042
     Dates: start: 20200724, end: 20200727
  15. ACETAMINOPHEN. [Concomitant]
     Active Substance: ACETAMINOPHEN
     Indication: PAIN
     Dosage: 650 MG, PRN
     Route: 048
     Dates: start: 20200721, end: 20200825
  16. AZTREONAM. [Concomitant]
     Active Substance: AZTREONAM
     Dosage: 1000 MG, Q8H
     Route: 042
     Dates: start: 20200725, end: 20200804
  17. OXYCODONE [Concomitant]
     Active Substance: OXYCODONE
     Indication: PAIN
     Dosage: 5 MG, PRN
     Route: 048
     Dates: start: 20200721, end: 20200825
  18. REMDESIVIR. [Suspect]
     Active Substance: REMDESIVIR
     Indication: COVID-19 PNEUMONIA
     Dosage: 200 MG, ONCE
     Route: 042
     Dates: start: 20200723, end: 20200723
  19. ACETAMINOPHEN. [Concomitant]
     Active Substance: ACETAMINOPHEN
     Indication: PYREXIA
  20. DILTIAZEM. [Concomitant]
     Active Substance: DILTIAZEM
     Dosage: 5 MG/HR
     Route: 042
     Dates: start: 20200725, end: 20200815
  21. POLYETHYLENE GLYCOL [MACROGOL] [Concomitant]
     Active Substance: POLYETHYLENE GLYCOLS
     Indication: CONSTIPATION
     Dosage: 17 G, BID
     Route: 048
     Dates: start: 20200721, end: 20200825
  22. ENOXAPARIN [Concomitant]
     Active Substance: ENOXAPARIN
     Dosage: 120 MG, BID
     Route: 058
     Dates: start: 20200801, end: 20200825
  23. MORPHINE SULFATE. [Concomitant]
     Active Substance: MORPHINE SULFATE
     Indication: PAIN
     Dosage: 4 MG, PRN
     Route: 042
     Dates: start: 20200729, end: 20200825
  24. SIMETHICONE (DIMETHICONE) [Concomitant]
     Active Substance: DIMETHICONE
     Indication: FLATULENCE
     Dosage: 160 MG, PRN
     Route: 048
     Dates: start: 20200725, end: 20200825

REACTIONS (3)
  - Respiratory failure [Fatal]
  - Bradycardia [Fatal]
  - Hypotension [Fatal]

NARRATIVE: CASE EVENT DATE: 20200723
